FAERS Safety Report 6434035-4 (Version None)
Quarter: 2010Q1

REPORT INFORMATION
  Report Type: 
  Country: None (occurrence: None)
  Receive Date: 20091109
  Receipt Date: 20091109
  Transmission Date: 20100710
  Serious: No
  Sender: FDA-Public Use
  Company Number: None

PATIENT
  Age: 66 Year
  Sex: Female
  Weight: 54.4316 kg

DRUGS (1)
  1. METANX [Suspect]
     Indication: DIABETIC NEUROPATHY
     Dosage: 1 TAB TWICE DAILY ORALLY
     Route: 048
     Dates: start: 20090928, end: 20091020

REACTIONS (1)
  - AGEUSIA [None]
